FAERS Safety Report 6348283-5 (Version None)
Quarter: 2009Q3

REPORT INFORMATION
  Report Type: 
  Country: None (occurrence: None)
  Receive Date: 20090908
  Receipt Date: 20090827
  Transmission Date: 20100115
  Serious: Yes (Life-Threatening, Hospitalization)
  Sender: FDA-Public Use
  Company Number: CHNY2009NL03384

PATIENT
  Age: 45 Year
  Sex: Male

DRUGS (12)
  1. HYOSCINE HBR HYT [Suspect]
     Indication: SALIVARY HYPERSECRETION
     Dosage: 1 DF, QD, TRANSDERMAL
     Route: 062
     Dates: start: 20090730
  2. PIPAMPERONE (PIPAMPERONE) [Concomitant]
  3. CLOBAZAM (CLOBAZAM) [Concomitant]
  4. CARBAMAZEPINE [Concomitant]
  5. CARBAMAZEPINE PCH RETARD (CARBAMAZEPINE) [Concomitant]
  6. LACTULOSE [Concomitant]
  7. SIMVASTATIN [Concomitant]
  8. FRISIUM (CLOBAZAM) [Concomitant]
  9. DIDROKIT (CALCIUM CARBONATE, ETIDRONATE DISODIUM) [Concomitant]
  10. MOVICOLON (MACROGOL, POTASSIUM CHLORIDE, SODIUM BICARBONATE, SODIUM CH [Concomitant]
  11. DIPPERON (PIPAMPERONE, PIPAMPERONE HYDROCHLORIDE) [Concomitant]
  12. DIPHANTOINE Z (PHENYTOIN SODIUM) [Concomitant]

REACTIONS (7)
  - COMA [None]
  - DRUG TOXICITY [None]
  - FALL [None]
  - GAIT DISTURBANCE [None]
  - HYPOTENSION [None]
  - OFF LABEL USE [None]
  - OVERDOSE [None]
